FAERS Safety Report 14381898 (Version 5)
Quarter: 2024Q1

REPORT INFORMATION
  Report Type: Spontaneous
  Country: NL (occurrence: NL)
  Receive Date: 20180112
  Receipt Date: 20240328
  Transmission Date: 20240409
  Serious: Yes (Other)
  Sender: FDA-Public Use
  Company Number: NL-EMA-DD-20171226-VSEVHPDD-114403

PATIENT
  Age: 44 Year
  Sex: Female

DRUGS (1)
  1. PREGABALIN [Suspect]
     Active Substance: PREGABALIN
     Indication: Diabetic neuropathy
     Dosage: UNK
     Route: 065

REACTIONS (3)
  - Tunnel vision [Recovered/Resolved]
  - Photophobia [Recovered/Resolved]
  - Chromatopsia [Recovered/Resolved]
